FAERS Safety Report 5931991-5 (Version None)
Quarter: 2008Q4

REPORT INFORMATION
  Report Type: 
  Country: None (occurrence: None)
  Receive Date: 20081027
  Receipt Date: 20081017
  Transmission Date: 20090506
  Serious: Yes (Hospitalization)
  Sender: FDA-Public Use
  Company Number: CH-PFIZER INC-2008088388

PATIENT
  Age: 79 Year
  Sex: Female

DRUGS (11)
  1. SORTIS [Suspect]
     Route: 048
     Dates: start: 20050101, end: 20080901
  2. TOLTERODINE TARTRATE [Suspect]
     Route: 048
     Dates: start: 20080601, end: 20080901
  3. TOREM [Suspect]
     Route: 048
     Dates: start: 20080601, end: 20080901
  4. TRIATEC [Suspect]
     Route: 048
     Dates: start: 20080601, end: 20080901
  5. VALVERDE [Suspect]
     Dosage: FREQ:HS
     Route: 048
     Dates: start: 20080601, end: 20080901
  6. PARAGOL [Suspect]
     Route: 048
     Dates: start: 20080601, end: 20080901
  7. ASPIRIN [Concomitant]
     Route: 048
     Dates: start: 20070501, end: 20081001
  8. BISOPROLOL FUMARATE [Concomitant]
     Route: 048
     Dates: start: 20040101, end: 20081001
  9. CALCIUM [Concomitant]
     Route: 048
  10. LUDIOMIL [Concomitant]
     Route: 048
     Dates: start: 19780101, end: 20081001
  11. EFFEXOR [Concomitant]
     Dosage: DAILY DOSE:150MG
     Dates: start: 20070601

REACTIONS (4)
  - HEPATIC NECROSIS [None]
  - HEPATITIS [None]
  - HEPATOCELLULAR INJURY [None]
  - HYPERBILIRUBINAEMIA [None]
